FAERS Safety Report 15015394 (Version 1)
Quarter: 2018Q2

REPORT INFORMATION
  Report Type: Spontaneous
  Country: US (occurrence: US)
  Receive Date: 20180615
  Receipt Date: 20180615
  Transmission Date: 20180711
  Serious: No
  Sender: FDA-Public Use
  Company Number: US-GLAXOSMITHKLINE-US2018101844

PATIENT
  Sex: Female

DRUGS (1)
  1. FLONASE ALLERGY RELIEF [Suspect]
     Active Substance: FLUTICASONE PROPIONATE
     Indication: FUNGAL INFECTION
     Dosage: UNK
     Route: 045
     Dates: start: 20180530, end: 20180530

REACTIONS (2)
  - Product use in unapproved indication [Unknown]
  - Headache [Unknown]
